FAERS Safety Report 10149473 (Version 1)
Quarter: 2014Q2

REPORT INFORMATION
  Report Type: Report from Study
  Country: JP (occurrence: JP)
  Receive Date: 20140502
  Receipt Date: 20140502
  Transmission Date: 20141212
  Serious: Yes (Hospitalization)
  Sender: FDA-Public Use
  Company Number: JP-ELI_LILLY_AND_COMPANY-JP201404007827

PATIENT
  Age: 60 Year
  Sex: Female
  Weight: 47.8 kg

DRUGS (8)
  1. RAMUCIRUMAB [Suspect]
     Indication: NON-SMALL CELL LUNG CANCER STAGE IV
     Route: 042
     Dates: start: 20140325
  2. DOCETAXEL [Suspect]
     Indication: NON-SMALL CELL LUNG CANCER STAGE IV
     Dosage: UNK
     Route: 042
     Dates: start: 20140325
  3. ADALAT CR                               /SCH/ [Concomitant]
     Indication: HYPERTENSION
     Dosage: 20 MG, QD
     Route: 048
     Dates: start: 2006
  4. CRESTOR [Concomitant]
     Indication: DYSLIPIDAEMIA
     Dosage: 2.5 MG, QD
     Route: 048
     Dates: start: 2006
  5. CALONAL [Concomitant]
     Indication: TUMOUR PAIN
     Dosage: 400 MG, TID
     Route: 048
     Dates: start: 20140206
  6. CALONAL [Concomitant]
     Indication: HEADACHE
  7. MAGLAX [Concomitant]
     Indication: CONSTIPATION
     Dosage: 330 MG, PRN
     Route: 048
     Dates: start: 20121016
  8. TAKEPRON [Concomitant]
     Indication: GASTRITIS PROPHYLAXIS
     Dosage: 15 MG, QD
     Route: 048
     Dates: start: 20130815

REACTIONS (1)
  - Infection [Not Recovered/Not Resolved]
